FAERS Safety Report 8605595-X (Version None)
Quarter: 2012Q3

REPORT INFORMATION
  Report Type: 
  Country: None (occurrence: None)
  Receive Date: 20120807
  Receipt Date: 20120717
  Transmission Date: 20120928
  Serious: Yes (Hospitalization, Other)
  Sender: FDA-Public Use
  Company Number: PNIS20120022

PATIENT
  Age: 40 Year
  Sex: Female

DRUGS (6)
  1. PREDNISOLONE [Suspect]
     Indication: OVERLAP SYNDROME
     Dosage: 10 MG,
  2. PREDNISOLONE [Suspect]
     Indication: SYSTEMIC LUPUS ERYTHEMATOSUS
     Dosage: 10 MG,
  3. AZATHIOPRINE [Suspect]
     Indication: OVERLAP SYNDROME
  4. AZATHIOPRINE [Suspect]
     Indication: SYSTEMIC LUPUS ERYTHEMATOSUS
  5. HYDROXYCHLOROQUINE SULFATE [Suspect]
     Indication: SYSTEMIC LUPUS ERYTHEMATOSUS
  6. HYDROXYCHLOROQUINE SULFATE [Suspect]
     Indication: OVERLAP SYNDROME

REACTIONS (20)
  - WHITE BLOOD CELL COUNT DECREASED [None]
  - ASPARTATE AMINOTRANSFERASE INCREASED [None]
  - ENTEROCOCCAL INFECTION [None]
  - ENTEROBACTER TEST POSITIVE [None]
  - SYSTEMIC LUPUS ERYTHEMATOSUS [None]
  - ARTHRALGIA [None]
  - FAT NECROSIS [None]
  - THROMBOSIS [None]
  - HAEMOGLOBIN DECREASED [None]
  - PLATELET COUNT DECREASED [None]
  - SKIN ULCER [None]
  - BLOOD CREATINE PHOSPHOKINASE INCREASED [None]
  - BLOOD LACTATE DEHYDROGENASE INCREASED [None]
  - SYSTEMIC SCLEROSIS [None]
  - ALANINE AMINOTRANSFERASE INCREASED [None]
  - NECROTISING FASCIITIS [None]
  - OVERLAP SYNDROME [None]
  - PYREXIA [None]
  - DECUBITUS ULCER [None]
  - SWELLING [None]
